FAERS Safety Report 6333043-1 (Version None)
Quarter: 2009Q3

REPORT INFORMATION
  Report Type: 
  Country: None (occurrence: None)
  Receive Date: 20090828
  Receipt Date: 20090820
  Transmission Date: 20100115
  Serious: Yes (Hospitalization)
  Sender: FDA-Public Use
  Company Number: JP-JNJFOC-20090800798

PATIENT
  Age: 8 Decade
  Sex: Female
  Weight: 50 kg

DRUGS (7)
  1. REMICADE [Suspect]
     Route: 042
  2. REMICADE [Suspect]
     Dosage: 5 INFUSIONS ON UNSPECIFIED DATES
     Route: 042
  3. REMICADE [Suspect]
     Indication: RHEUMATOID ARTHRITIS
     Route: 042
  4. ANTIHISTAMINE [Concomitant]
     Indication: PREMEDICATION
  5. ANTIPYRETIC ANALGESICS [Concomitant]
     Indication: PREMEDICATION
  6. H2 RECEPTOR ANTAGONIST [Concomitant]
     Indication: PREMEDICATION
  7. RHEUMATREX [Concomitant]
     Indication: RHEUMATOID ARTHRITIS
     Route: 048

REACTIONS (3)
  - INFUSION RELATED REACTION [None]
  - PYREXIA [None]
  - TREMOR [None]
